FAERS Safety Report 8356587-X (Version None)
Quarter: 2012Q2

REPORT INFORMATION
  Report Type: 
  Country: None (occurrence: None)
  Receive Date: 20120514
  Receipt Date: 20120508
  Transmission Date: 20120825
  Serious: Yes (Other)
  Sender: FDA-Public Use
  Company Number: PHHY2011IT95310

PATIENT
  Sex: Female

DRUGS (7)
  1. ZOMETA [Suspect]
     Indication: METASTASES TO BONE
     Dosage: 4 MG, QMO
     Dates: start: 20110715
  2. ZOMETA [Suspect]
     Dosage: 4 MG, QMO
     Dates: start: 20110915
  3. GONADORELIN INJ [Concomitant]
     Dosage: UNK UKN, UNK
     Dates: start: 20090902
  4. NOLVADEX [Concomitant]
     Dosage: UNK UKN, UNK
     Dates: start: 20100101
  5. ZOMETA [Suspect]
     Dosage: 4 MG, QMO
     Dates: start: 20110818
  6. CHEMOTHERAPEUTICS [Concomitant]
     Dosage: UNK UKN, UNK
  7. FEMARA [Concomitant]
     Dosage: 2.5 MG, UNK
     Dates: start: 20090902

REACTIONS (2)
  - OSTEONECROSIS OF JAW [None]
  - TOOTH ABSCESS [None]
